FAERS Safety Report 16051051 (Version 4)
Quarter: 2019Q1

REPORT INFORMATION
  Report Type: Spontaneous
  Country: HU (occurrence: HU)
  Receive Date: 20190308
  Receipt Date: 20190321
  Transmission Date: 20190418
  Serious: Yes (Hospitalization, Other)
  Sender: FDA-Public Use
  Company Number: PHHY2019HU025633

PATIENT
  Age: 74 Year
  Sex: Male
  Weight: 70 kg

DRUGS (21)
  1. MODUXIN MR [Concomitant]
     Active Substance: TRIMETAZIDINE DIHYDROCHLORIDE
     Indication: MYOCARDIAL ISCHAEMIA
     Dosage: 35 MG, BID
     Route: 065
     Dates: start: 20180725, end: 20190128
  2. CLEXANE [Concomitant]
     Active Substance: ENOXAPARIN SODIUM
     Indication: PRODUCT USED FOR UNKNOWN INDICATION
     Dosage: 0.4 ML, QD
     Route: 058
  3. PANTOPRAZOLE SODIUM. [Suspect]
     Active Substance: PANTOPRAZOLE SODIUM
     Indication: GASTROINTESTINAL DISORDER
     Dosage: 40 MG, BID
     Route: 065
     Dates: start: 20150428
  4. NITROMINT [Concomitant]
     Active Substance: NITROGLYCERIN
     Indication: HYPERTENSION
  5. ELIQUIS [Concomitant]
     Active Substance: APIXABAN
     Indication: PRODUCT USED FOR UNKNOWN INDICATION
     Dosage: 2.5 MG, BID
     Route: 065
     Dates: start: 20180725, end: 20190128
  6. BRINALDIX [Concomitant]
     Indication: CARDIAC FAILURE
     Dosage: 20 MG, Q96H
     Route: 065
     Dates: start: 20150428
  7. NEBISPES [Concomitant]
     Indication: PRODUCT USED FOR UNKNOWN INDICATION
     Dosage: 5 MG, BID
     Route: 065
  8. ROSUVASTATIN SANDOZ [Suspect]
     Active Substance: ROSUVASTATIN CALCIUM
     Indication: MYOCARDIAL ISCHAEMIA
     Dosage: 10 MG, QD (IN THE EVENING)
     Route: 065
     Dates: start: 20180725, end: 20190128
  9. POTASSIUM [Concomitant]
     Active Substance: POTASSIUM
     Indication: PRODUCT USED FOR UNKNOWN INDICATION
     Dosage: 1 G, TID
     Route: 065
  10. FURON [Concomitant]
     Active Substance: FUROSEMIDE
     Indication: PRODUCT USED FOR UNKNOWN INDICATION
     Dosage: 2 DF, TIW
     Route: 065
  11. NEO FERRO FOLGAMMA [Concomitant]
     Indication: PRODUCT USED FOR UNKNOWN INDICATION
     Dosage: UNK
     Route: 065
  12. MILURIT [Concomitant]
     Active Substance: ALLOPURINOL
     Indication: BLOOD URIC ACID INCREASED
     Dosage: 100 MG, QD (IN THE MORNING)
     Route: 065
     Dates: end: 20190128
  13. INSPRA [Concomitant]
     Active Substance: EPLERENONE
     Indication: MYOCARDIAL ISCHAEMIA
     Dosage: 50 MG, QD (IN THE MORNING)
     Route: 065
     Dates: start: 20180725, end: 20190128
  14. MERAMYL [Concomitant]
     Indication: PRODUCT USED FOR UNKNOWN INDICATION
     Dosage: 2.5 MG, BID
     Route: 065
  15. KALDYUM [Concomitant]
     Active Substance: POTASSIUM CHLORIDE
     Indication: PRODUCT USED FOR UNKNOWN INDICATION
     Dosage: 2 DF, UNK
     Route: 065
  16. MERCKFORMIN [Concomitant]
     Active Substance: METFORMIN HYDROCHLORIDE
     Indication: DIABETES MELLITUS
     Dosage: 1000 MG, QD (IN THE EVENING)
     Route: 065
     Dates: start: 20180725, end: 20190128
  17. NITROMINT [Concomitant]
     Active Substance: NITROGLYCERIN
     Indication: ANGINA PECTORIS
     Dosage: 5 MG, Q12H
     Route: 065
     Dates: start: 20180725
  18. FUROSEMIDE. [Concomitant]
     Active Substance: FUROSEMIDE
     Indication: CARDIAC FAILURE
     Dosage: 80 MG, Q96H
     Route: 065
     Dates: start: 20150428
  19. ENTRESTO [Suspect]
     Active Substance: SACUBITRIL\VALSARTAN
     Indication: CARDIAC FAILURE
     Dosage: 50 MG, BID (24/26 MG)
     Route: 048
     Dates: start: 20190115, end: 20190128
  20. BISOPROLOL SANDOZ [Suspect]
     Active Substance: BISOPROLOL
     Indication: CARDIAC FAILURE
     Dosage: 2.5 MG, BID
     Route: 065
     Dates: start: 20180725, end: 20190128
  21. XANAX [Concomitant]
     Active Substance: ALPRAZOLAM
     Indication: ANXIETY
     Dosage: 0.25 MG, QD (IN THE EVENING)
     Route: 065
     Dates: end: 20190128

REACTIONS (31)
  - Blood potassium increased [Recovered/Resolved]
  - Polyarthritis [Unknown]
  - Prostatomegaly [Unknown]
  - Gout [Unknown]
  - Scoliosis [Unknown]
  - Dyspnoea [Unknown]
  - Pulmonary embolism [Unknown]
  - Dyspnoea paroxysmal nocturnal [Unknown]
  - Nocturia [Unknown]
  - Hypertension [Unknown]
  - Bronchitis chronic [Unknown]
  - Hyperlipidaemia [Unknown]
  - Hypoacusis [Not Recovered/Not Resolved]
  - Plantar fascial fibromatosis [Unknown]
  - Pulmonary hypertension [Unknown]
  - Pleural effusion [Unknown]
  - Renal impairment [Recovered/Resolved]
  - Cardiac failure chronic [Unknown]
  - Left ventricular dysfunction [Unknown]
  - Tricuspid valve incompetence [Unknown]
  - Cardiomyopathy [Unknown]
  - Arteriosclerosis [Unknown]
  - Intervertebral disc disorder [Unknown]
  - Ascites [Unknown]
  - Diabetes mellitus [Unknown]
  - Spinal osteoarthritis [Unknown]
  - Polycythaemia vera [Unknown]
  - Benign prostatic hyperplasia [Unknown]
  - Deafness unilateral [Unknown]
  - Peripheral swelling [Unknown]
  - Otorrhoea [Unknown]

NARRATIVE: CASE EVENT DATE: 20180725
